FAERS Safety Report 24538367 (Version 1)
Quarter: 2024Q4

REPORT INFORMATION
  Report Type: Spontaneous
  Country: ES (occurrence: ES)
  Receive Date: 20241023
  Receipt Date: 20241023
  Transmission Date: 20250115
  Serious: Yes (Life-Threatening, Hospitalization)
  Sender: ACCORD
  Company Number: None

PATIENT
  Age: 55 Year
  Sex: Female
  Weight: 51.1 kg

DRUGS (5)
  1. MYCOPHENOLIC ACID [Suspect]
     Active Substance: MYCOPHENOLIC ACID
     Indication: Idiopathic interstitial pneumonia
     Dates: start: 2015
  2. RITUXIMAB [Suspect]
     Active Substance: RITUXIMAB
     Indication: Idiopathic interstitial pneumonia
     Dates: start: 20221003, end: 202403
  3. TACROLIMUS [Suspect]
     Active Substance: TACROLIMUS
     Indication: Solid organ transplant
     Dates: start: 20240706
  4. PREDNISONE [Suspect]
     Active Substance: PREDNISONE
     Indication: Idiopathic interstitial pneumonia
     Dates: start: 2015
  5. BASILIXIMAB [Suspect]
     Active Substance: BASILIXIMAB
     Indication: Solid organ transplant
     Dates: start: 20240703, end: 20240706

REACTIONS (1)
  - Pneumonia cytomegaloviral [Recovered/Resolved]

NARRATIVE: CASE EVENT DATE: 20240717
